FAERS Safety Report 5027247-8 (Version None)
Quarter: 2006Q2

REPORT INFORMATION
  Report Type: 
  Country: None (occurrence: None)
  Receive Date: 20060501
  Receipt Date: 20060210
  Transmission Date: 20061013
  Serious: No
  Sender: FDA-Public Use
  Company Number: 200610828BWH

PATIENT
  Age: 64 Year
  Sex: Female

DRUGS (13)
  1. NEXAVAR [Suspect]
     Indication: RENAL CELL CARCINOMA STAGE UNSPECIFIED
     Dosage: 400 MG, BID, ORAL
     Route: 048
     Dates: start: 20060101
  2. DILANTIN [Concomitant]
  3. ACTOS [Concomitant]
  4. AMARYL [Concomitant]
  5. HUMULIN [Concomitant]
  6. DIAMOX [Concomitant]
  7. LASIX [Concomitant]
  8. CLONIDINE [Concomitant]
  9. VITAMINS [Concomitant]
  10. OXYGEN [Concomitant]
  11. FOSAMAX [Concomitant]
  12. MIACALCIN [Concomitant]
  13. SYNTHROID [Concomitant]

REACTIONS (1)
  - PAIN [None]
